FAERS Safety Report 8300404-0 (Version None)
Quarter: 2012Q2

REPORT INFORMATION
  Report Type: 
  Country: None (occurrence: None)
  Receive Date: 20120420
  Receipt Date: 20120417
  Transmission Date: 20120825
  Serious: Yes (Hospitalization)
  Sender: FDA-Public Use
  Company Number: ES-AMGEN-ESPCT2012024324

PATIENT
  Age: 78 Year
  Sex: Male

DRUGS (2)
  1. PANITUMUMAB [Suspect]
     Indication: HEAD AND NECK CANCER METASTATIC
     Dosage: 470 MG, Q2WK
     Route: 042
     Dates: start: 20120320
  2. PACLITAXEL [Concomitant]
     Indication: HEAD AND NECK CANCER METASTATIC
     Dosage: 150 MG, QWK
     Route: 042
     Dates: start: 20120320

REACTIONS (1)
  - RESPIRATORY TRACT INFECTION [None]
